FAERS Safety Report 15159518 (Version 1)
Quarter: 2018Q3

REPORT INFORMATION
  Report Type: Spontaneous
  Country: US (occurrence: US)
  Receive Date: 20180620
  Receipt Date: 20180620
  Transmission Date: 20181010
  Serious: Yes (Hospitalization, Other)
  Sender: FDA-Public Use
  Company Number: None

PATIENT
  Age: 70 Year
  Sex: Female
  Weight: 78.75 kg

DRUGS (13)
  1. ZOFRAN [Concomitant]
     Active Substance: ONDANSETRON HYDROCHLORIDE
  2. VITAMIN SUPPLEMENTS [Concomitant]
     Active Substance: VITAMINS
  3. METHERGINE [Suspect]
     Active Substance: METHYLERGONOVINE MALEATE
     Indication: MIGRAINE
     Route: 048
     Dates: start: 20141220, end: 20180105
  4. CYCMBALTA [Concomitant]
  5. TYNENOL [Concomitant]
  6. SINGULAIR [Concomitant]
     Active Substance: MONTELUKAST SODIUM
  7. TRINTELLIX [Concomitant]
     Active Substance: VORTIOXETINE HYDROBROMIDE
  8. FLOWMAX [Concomitant]
  9. NEURONTIN [Concomitant]
     Active Substance: GABAPENTIN
  10. ATIVAN [Concomitant]
     Active Substance: LORAZEPAM
  11. ROUVANSTATIN [Concomitant]
  12. MECILIZINE [Concomitant]
  13. OXY?BUTTIN [Concomitant]

REACTIONS (6)
  - Kidney enlargement [None]
  - Hydronephrosis [None]
  - Blood creatine increased [None]
  - Retroperitoneal fibrosis [None]
  - Blood urea increased [None]
  - Peripheral swelling [None]

NARRATIVE: CASE EVENT DATE: 20170830
